FAERS Safety Report 9404958 (Version 1)
Quarter: 2013Q3

REPORT INFORMATION
  Report Type: Spontaneous
  Country: US (occurrence: US)
  Receive Date: 20130717
  Receipt Date: 20130717
  Transmission Date: 20140515
  Serious: No
  Sender: FDA-Public Use
  Company Number: US-009507513-1307USA007612

PATIENT
  Age: 34 Year
  Sex: Female
  Weight: 98.87 kg

DRUGS (1)
  1. NEXPLANON [Suspect]
     Indication: CONTRACEPTION
     Dosage: ONCE/ THREE YEAR
     Route: 059
     Dates: start: 20130113, end: 20130707

REACTIONS (1)
  - Pulmonary oedema [Recovering/Resolving]
